FAERS Safety Report 9731378 (Version 1)
Quarter: 2013Q4

REPORT INFORMATION
  Report Type: Spontaneous
  Country: US (occurrence: US)
  Receive Date: 20131203
  Receipt Date: 20131203
  Transmission Date: 20140711
  Serious: No
  Sender: FDA-Public Use
  Company Number: US-NOVEN-13US007938

PATIENT
  Age: 55 Year
  Sex: Female

DRUGS (6)
  1. FENTANYL [Suspect]
     Indication: NEUROPATHY PERIPHERAL
     Dosage: 100 UG/HR Q 48 HRS
     Route: 062
     Dates: start: 201309
  2. FENTANYL [Suspect]
     Dosage: 50 UG/HR Q 48 HRS
     Route: 062
     Dates: start: 201309
  3. NORCO [Concomitant]
     Dosage: UNK
  4. DILANTIN                           /00017401/ [Concomitant]
     Dosage: UNK
  5. PROZAC [Concomitant]
     Dosage: UNK
  6. QUETIAPINE FUMARATE [Concomitant]
     Dosage: UNK

REACTIONS (1)
  - Pruritus generalised [Not Recovered/Not Resolved]
